FAERS Safety Report 8808536 (Version 1)
Quarter: 2012Q4

REPORT INFORMATION
  Report Type: Spontaneous
  Country: US (occurrence: None)
  Receive Date: 20120920
  Receipt Date: 20120920
  Transmission Date: 20130627
  Serious: No
  Sender: FDA-Public Use
  Company Number: None

PATIENT
  Sex: Male

DRUGS (2)
  1. PLAQUENIL [Suspect]
  2. METHOTREXATE [Suspect]

REACTIONS (1)
  - Liver disorder [None]
